FAERS Safety Report 12262675 (Version 2)
Quarter: 2016Q2

REPORT INFORMATION
  Report Type: Spontaneous
  Country: NO (occurrence: NO)
  Receive Date: 20160413
  Receipt Date: 20160418
  Transmission Date: 20160815
  Serious: Yes (Hospitalization, Disabling, Other)
  Sender: FDA-Public Use
  Company Number: NO-BRISTOL-MYERS SQUIBB COMPANY-BMS-2016-027472

PATIENT
  Age: 13 Year
  Sex: Male
  Weight: 62 kg

DRUGS (1)
  1. ABILIFY [Suspect]
     Active Substance: ARIPIPRAZOLE
     Indication: MOOD SWINGS
     Dosage: 15 MG, UNK
     Route: 065
     Dates: start: 20130216, end: 20150301

REACTIONS (7)
  - Vomiting [Unknown]
  - Muscle spasms [Recovering/Resolving]
  - Off label use [Unknown]
  - Weight increased [Unknown]
  - Tourette^s disorder [Unknown]
  - Muscle twitching [Unknown]
  - Nausea [Unknown]

NARRATIVE: CASE EVENT DATE: 2013
